FAERS Safety Report 5598690-3 (Version None)
Quarter: 2008Q1

REPORT INFORMATION
  Report Type: 
  Country: None (occurrence: None)
  Receive Date: 20080117
  Receipt Date: 20080108
  Transmission Date: 20080703
  Serious: Yes (Other)
  Sender: FDA-Public Use
  Company Number: 18158

PATIENT
  Age: 10 Year
  Sex: Female

DRUGS (5)
  1. METHOTREXATE [Suspect]
     Indication: PROPHYLAXIS AGAINST GRAFT VERSUS HOST DISEASE
  2. ETOPOSIDE [Suspect]
     Indication: BONE MARROW CONDITIONING REGIMEN
     Dosage: 60 MG/KG
  3. TBI [Suspect]
     Indication: BONE MARROW CONDITIONING REGIMEN
  4. ATG /00233401/. MFR: NO SPECIFIED [Suspect]
     Indication: BONE MARROW CONDITIONING REGIMEN
     Dosage: 60 MG/KG
  5. CYCLOSPORINE [Suspect]
     Indication: PROPHYLAXIS AGAINST GRAFT VERSUS HOST DISEASE

REACTIONS (7)
  - ACUTE GRAFT VERSUS HOST DISEASE IN SKIN [None]
  - EPSTEIN-BARR VIRUS INFECTION [None]
  - LEUKAEMIA RECURRENT [None]
  - MUCOSAL INFLAMMATION [None]
  - PERICARDIAL EFFUSION [None]
  - PULMONARY OEDEMA [None]
  - RENAL FAILURE [None]
